FAERS Safety Report 13660456 (Version 5)
Quarter: 2020Q3

REPORT INFORMATION
  Report Type: Report from Study
  Country: NL (occurrence: NL)
  Receive Date: 20170616
  Receipt Date: 20200717
  Transmission Date: 20201102
  Serious: Yes (Death, Hospitalization)
  Sender: FDA-Public Use
  Company Number: US-ASTRAZENECA-2017SE58738

PATIENT
  Age: 74 Year
  Sex: Male
  Weight: 95.6 kg

DRUGS (52)
  1. MEDI4736 [Suspect]
     Active Substance: DURVALUMAB
     Indication: PLASMA CELL MYELOMA
     Dosage: 1500.0MG ONCE/SINGLE ADMINISTRATION
     Route: 041
     Dates: start: 20170531
  2. CC?4047 [Suspect]
     Active Substance: POMALIDOMIDE
     Indication: PLASMA CELL MYELOMA
     Dosage: 2 MG
     Route: 048
     Dates: start: 20170703, end: 20170703
  3. DEXAMETHASONE. [Suspect]
     Active Substance: DEXAMETHASONE
     Indication: PLASMA CELL MYELOMA
     Dosage: 40 MILLIGRAM
     Route: 048
     Dates: start: 20170302, end: 20170323
  4. DEXAMETHASONE. [Suspect]
     Active Substance: DEXAMETHASONE
     Indication: PLASMA CELL MYELOMA
     Dosage: 40 MILLIGRAM
     Route: 048
     Dates: end: 20170426
  5. MOVICOLON [Concomitant]
     Active Substance: POLYETHYLENE GLYCOL 3350\POTASSIUM CHLORIDE\SODIUM BICARBONATE\SODIUM CHLORIDE
     Indication: CONSTIPATION PROPHYLAXIS
     Dosage: 2 SATCHETS, TWO TIMES A DAY
     Route: 048
     Dates: start: 20170215
  6. METOCLOPRAMIDE. [Concomitant]
     Active Substance: METOCLOPRAMIDE
     Indication: PROPHYLAXIS OF NAUSEA AND VOMITING
     Route: 041
     Dates: start: 20170606, end: 20170612
  7. HYDROCORTISON [Concomitant]
     Active Substance: HYDROCORTISONE
     Indication: HYPONATRAEMIA
     Route: 048
     Dates: start: 20170605, end: 20170613
  8. HYDROCORTISON [Concomitant]
     Active Substance: HYDROCORTISONE
     Indication: HYPONATRAEMIA
     Dosage: 10 MG
     Route: 048
     Dates: start: 20170608, end: 20170618
  9. LOCOID [Concomitant]
     Active Substance: HYDROCORTISONE BUTYRATE
     Indication: HYPONATRAEMIA
     Route: 061
  10. PREDNISOLONE. [Concomitant]
     Active Substance: PREDNISOLONE
     Indication: HYPOTENSION
     Route: 048
     Dates: start: 20170614
  11. SODIUM PHOSPHATE [Concomitant]
     Active Substance: SODIUM PHOSPHATE
     Indication: CONSTIPATION
     Dosage: 1 ENEMA
     Route: 054
     Dates: start: 20170611, end: 20170612
  12. CC?4047 [Suspect]
     Active Substance: POMALIDOMIDE
     Indication: PLASMA CELL MYELOMA
     Dosage: 2 MG
     Route: 048
     Dates: start: 20170531, end: 20170607
  13. METOCLOPRAMIDE. [Concomitant]
     Active Substance: METOCLOPRAMIDE
     Indication: PROPHYLAXIS OF NAUSEA AND VOMITING
     Route: 041
     Dates: start: 20170606, end: 20170616
  14. PAMIDRONATE [Concomitant]
     Active Substance: PAMIDRONATE DISODIUM
     Indication: PROPHYLAXIS
     Route: 041
  15. LANETTE OINTMENT [Concomitant]
     Indication: DRY SKIN
     Route: 061
  16. LORAZEPAM. [Concomitant]
     Active Substance: LORAZEPAM
     Indication: NAUSEA
     Route: 048
     Dates: start: 20170613, end: 20170613
  17. DEXAMETHASONE. [Suspect]
     Active Substance: DEXAMETHASONE
     Indication: PLASMA CELL MYELOMA
     Dosage: 4 MG
     Route: 048
     Dates: start: 20170524, end: 20170524
  18. AMITRIPTYLINE [Concomitant]
     Active Substance: AMITRIPTYLINE
     Indication: POLYNEUROPATHY
     Route: 048
  19. PANTOPRAZOL [Concomitant]
     Active Substance: PANTOPRAZOLE SODIUM
     Indication: PROPHYLAXIS
     Route: 048
     Dates: start: 20170607
  20. CARBASALATE CALCIUM [Concomitant]
     Active Substance: CARBASPIRIN CALCIUM
     Indication: THROMBOSIS PROPHYLAXIS
     Route: 048
     Dates: start: 20170302
  21. HYDROCORTISON [Concomitant]
     Active Substance: HYDROCORTISONE
     Indication: HYPERKALAEMIA
     Route: 041
     Dates: start: 20170522, end: 20170522
  22. HYDROCORTISON [Concomitant]
     Active Substance: HYDROCORTISONE
     Indication: HYPERKALAEMIA
     Dosage: 10 MG
     Route: 048
     Dates: start: 20170609, end: 20170610
  23. MEDI4736 [Suspect]
     Active Substance: DURVALUMAB
     Indication: PLASMA CELL MYELOMA
     Dosage: 1500.0MG ONCE/SINGLE ADMINISTRATION
     Route: 041
     Dates: start: 20170426, end: 20170426
  24. METOCLOPRAMIDE. [Concomitant]
     Active Substance: METOCLOPRAMIDE
     Indication: PROPHYLAXIS OF NAUSEA AND VOMITING
     Dosage: 10 MG
     Route: 048
     Dates: start: 20170215
  25. COTRIMOXAZOL [Concomitant]
     Active Substance: SULFAMETHOXAZOLE\TRIMETHOPRIM
     Indication: INFECTION PROPHYLAXIS
     Route: 048
     Dates: start: 20170302, end: 20170531
  26. HYDROCORTISON [Concomitant]
     Active Substance: HYDROCORTISONE
     Indication: HYPONATRAEMIA
     Route: 041
     Dates: start: 20170522, end: 20170522
  27. HYDROCORTISON [Concomitant]
     Active Substance: HYDROCORTISONE
     Indication: HYPERKALAEMIA
     Dosage: 10 MG
     Route: 048
     Dates: start: 20170608, end: 20170618
  28. AZITHROMYCIN ANHYDROUS. [Concomitant]
     Active Substance: AZITHROMYCIN ANHYDROUS
     Indication: INFECTION PROPHYLAXIS
     Route: 048
  29. MEDI4736 [Suspect]
     Active Substance: DURVALUMAB
     Indication: PLASMA CELL MYELOMA
     Dosage: 1500.0MG ONCE/SINGLE ADMINISTRATION
     Route: 041
     Dates: start: 20170302, end: 20170302
  30. CC?4047 [Suspect]
     Active Substance: POMALIDOMIDE
     Indication: PLASMA CELL MYELOMA
     Dosage: 3 MG
     Route: 048
     Dates: start: 20170426, end: 20170516
  31. METOCLOPRAMIDE. [Concomitant]
     Active Substance: METOCLOPRAMIDE
     Indication: PROPHYLAXIS OF NAUSEA AND VOMITING
     Route: 041
     Dates: start: 20170605, end: 20170605
  32. NADROPARINE [Concomitant]
     Active Substance: NADROPARIN
     Indication: THROMBOSIS PROPHYLAXIS
     Route: 058
     Dates: start: 20170605, end: 20170616
  33. LOCOID [Concomitant]
     Active Substance: HYDROCORTISONE BUTYRATE
     Indication: DRY SKIN
     Route: 061
  34. MOVICOLON [Concomitant]
     Active Substance: POLYETHYLENE GLYCOL 3350\POTASSIUM CHLORIDE\SODIUM BICARBONATE\SODIUM CHLORIDE
     Indication: CONSTIPATION PROPHYLAXIS
     Dosage: 2 SATCHETS, TWO TIMES A DAY
     Route: 048
     Dates: start: 20170611, end: 20170616
  35. OXYNORM [Concomitant]
     Active Substance: OXYCODONE HYDROCHLORIDE
     Indication: PAIN
     Route: 048
     Dates: start: 20170606
  36. HYDROCORTISON [Concomitant]
     Active Substance: HYDROCORTISONE
     Indication: HYPERKALAEMIA
     Route: 048
     Dates: start: 20170605, end: 20170613
  37. HYDROCORTISON [Concomitant]
     Active Substance: HYDROCORTISONE
     Indication: HYPONATRAEMIA
     Dosage: 10 MG
     Route: 048
     Dates: start: 20170609, end: 20170610
  38. CETOMACROGOL [Concomitant]
     Active Substance: COSMETICS
     Indication: HYPONATRAEMIA
     Dosage: TWO TIMES A DAY
     Route: 061
  39. RANITIDINE. [Concomitant]
     Active Substance: RANITIDINE
     Indication: PROPHYLAXIS
     Route: 048
     Dates: start: 20170607, end: 20170616
  40. KETOCONAZOLE. [Concomitant]
     Active Substance: KETOCONAZOLE
     Indication: DRY SKIN
     Route: 061
  41. CC?4047 [Suspect]
     Active Substance: POMALIDOMIDE
     Indication: PLASMA CELL MYELOMA
     Dosage: 4 MG
     Route: 048
     Dates: start: 20170302, end: 20170322
  42. CC?4047 [Suspect]
     Active Substance: POMALIDOMIDE
     Indication: PLASMA CELL MYELOMA
     Dosage: 2 MG
     Route: 048
     Dates: start: 20170617
  43. OXYNORM [Concomitant]
     Active Substance: OXYCODONE HYDROCHLORIDE
     Indication: PAIN
     Route: 048
     Dates: start: 20170511, end: 20170604
  44. LANETTE OINTMENT [Concomitant]
     Indication: HYPONATRAEMIA
     Route: 061
  45. AZITHROMYCIN ANHYDROUS. [Concomitant]
     Active Substance: AZITHROMYCIN ANHYDROUS
     Indication: INFECTION PROPHYLAXIS
     Route: 048
     Dates: start: 20170531, end: 20170616
  46. VALACICLOVIR [Concomitant]
     Active Substance: VALACYCLOVIR HYDROCHLORIDE
     Indication: INFECTION PROPHYLAXIS
     Route: 048
     Dates: start: 20170607
  47. METOCLOPRAMIDE. [Concomitant]
     Active Substance: METOCLOPRAMIDE
     Indication: PROPHYLAXIS OF NAUSEA AND VOMITING
     Route: 041
     Dates: start: 20170521, end: 20170526
  48. NADROPARINE [Concomitant]
     Active Substance: NADROPARIN
     Indication: THROMBOSIS PROPHYLAXIS
     Route: 051
     Dates: start: 20170302, end: 20170604
  49. PARACETAMOL [Concomitant]
     Active Substance: ACETAMINOPHEN
     Indication: PAIN
     Route: 048
     Dates: start: 201705
  50. CETOMACROGOL [Concomitant]
     Active Substance: COSMETICS
     Indication: DRY SKIN
     Dosage: TWO TIMES A DAY
     Route: 061
  51. AMITRIPTYLINE [Concomitant]
     Active Substance: AMITRIPTYLINE
     Indication: POLYNEUROPATHY
     Route: 048
  52. HYDROCORTISONE BUTYRATE. [Concomitant]
     Active Substance: HYDROCORTISONE BUTYRATE
     Indication: DRY SKIN
     Route: 061

REACTIONS (2)
  - Pathological fracture [Recovered/Resolved with Sequelae]
  - Pyrexia [Recovered/Resolved]

NARRATIVE: CASE EVENT DATE: 20170520
